FAERS Safety Report 5705020-2 (Version None)
Quarter: 2008Q2

REPORT INFORMATION
  Report Type: 
  Country: None (occurrence: None)
  Receive Date: 20080414
  Receipt Date: 20080403
  Transmission Date: 20081010
  Serious: Yes (Other)
  Sender: FDA-Public Use
  Company Number: US-PFIZER INC-2008030063

PATIENT

DRUGS (1)
  1. SUTENT [Suspect]

REACTIONS (3)
  - HAEMOGLOBIN DECREASED [None]
  - HAEMOLYSIS [None]
  - MICROCYTOSIS [None]
